FAERS Safety Report 7733718-3 (Version None)
Quarter: 2011Q3

REPORT INFORMATION
  Report Type: 
  Country: None (occurrence: None)
  Receive Date: 20110907
  Receipt Date: 20110831
  Transmission Date: 20111222
  Serious: Yes (Other)
  Sender: FDA-Public Use
  Company Number: HK-PFIZER INC-2011204272

PATIENT
  Age: 76 Year
  Sex: Male

DRUGS (1)
  1. SILDENAFIL CITRATE [Suspect]
     Indication: PULMONARY HYPERTENSION
     Dosage: UNK

REACTIONS (3)
  - HAEMOBILIA [None]
  - UPPER GASTROINTESTINAL HAEMORRHAGE [None]
  - PLATELET FUNCTION TEST ABNORMAL [None]
